FAERS Safety Report 13196090 (Version 1)
Quarter: 2017Q1

REPORT INFORMATION
  Report Type: Spontaneous
  Country: DE (occurrence: DE)
  Receive Date: 20170208
  Receipt Date: 20170208
  Transmission Date: 20170428
  Serious: Yes (Congenital Anomaly)
  Sender: FDA-Public Use
  Company Number: DE-SUN PHARMACEUTICAL INDUSTRIES LTD-2017RR-132865

PATIENT
  Age: 1 Day
  Sex: Male
  Weight: 3.2 kg

DRUGS (3)
  1. FOLIC ACID. [Concomitant]
     Active Substance: FOLIC ACID
     Indication: PROPHYLAXIS OF NEURAL TUBE DEFECT
     Dosage: 1 TRIMESTER, 7-38.6 GESTATIONAL WEEK
     Route: 064
     Dates: start: 20160209, end: 20160919
  2. ATOSIL [Suspect]
     Active Substance: PROMETHAZINE HYDROCHLORIDE
     Indication: POST-TRAUMATIC STRESS DISORDER
     Dosage: 25 MG, DAILY, 0-28 GESTATIONAL WEEK, 1 TRIMESTER
     Route: 064
     Dates: start: 20151202, end: 20160705
  3. VENLAFAXINE [Suspect]
     Active Substance: VENLAFAXINE HYDROCHLORIDE
     Indication: POST-TRAUMATIC STRESS DISORDER
     Dosage: 150 MG, DAILY, 0-25 GESTATIONAL WEEK, 1 TRIMESTER
     Route: 064
     Dates: start: 20151202, end: 20160614

REACTIONS (4)
  - Patent ductus arteriosus [Recovering/Resolving]
  - Atrial septal defect [Unknown]
  - Congenital diaphragmatic hernia [Recovered/Resolved with Sequelae]
  - Ventricular septal defect [Unknown]

NARRATIVE: CASE EVENT DATE: 20160920
